FAERS Safety Report 5016033-0 (Version None)
Quarter: 2006Q2

REPORT INFORMATION
  Report Type: 
  Country: None (occurrence: None)
  Receive Date: 20060414
  Receipt Date: 20060314
  Transmission Date: 20061013
  Serious: No
  Sender: FDA-Public Use
  Company Number: 2006SP001224

PATIENT
  Age: 44 Year
  Sex: Female
  Weight: 65.318 kg

DRUGS (2)
  1. LUNESTA [Suspect]
     Indication: INSOMNIA
     Dosage: 2 MG; PRN; ORAL
     Route: 048
     Dates: start: 20050901
  2. LUNESTA [Suspect]
     Indication: PAIN
     Dosage: 2 MG; PRN; ORAL
     Route: 048
     Dates: start: 20050901

REACTIONS (1)
  - MIDDLE INSOMNIA [None]
